FAERS Safety Report 25120135 (Version 1)
Quarter: 2025Q1

REPORT INFORMATION
  Report Type: Spontaneous
  Country: CA (occurrence: CA)
  Receive Date: 20250325
  Receipt Date: 20250325
  Transmission Date: 20250409
  Serious: Yes (Other)
  Sender: PFIZER
  Company Number: CA-PFIZER INC-202500053649

PATIENT
  Age: 66 Year
  Sex: Female

DRUGS (16)
  1. RUXIENCE [Suspect]
     Active Substance: RITUXIMAB-PVVR
     Indication: Granulomatosis with polyangiitis
     Route: 042
     Dates: start: 20230728, end: 20230810
  2. RUXIENCE [Suspect]
     Active Substance: RITUXIMAB-PVVR
     Route: 042
     Dates: start: 20240214, end: 20240228
  3. RUXIENCE [Suspect]
     Active Substance: RITUXIMAB-PVVR
     Route: 042
     Dates: start: 20240820, end: 20240820
  4. BUDESONIDE [Concomitant]
     Active Substance: BUDESONIDE
  5. CYMBALTA [Concomitant]
     Active Substance: DULOXETINE HYDROCHLORIDE
  6. CLONIDINE [Concomitant]
     Active Substance: CLONIDINE
  7. EZETIMIBE [Concomitant]
     Active Substance: EZETIMIBE
  8. ESTROGENS [Concomitant]
     Active Substance: ESTROGENS
  9. FUSIDIC ACID [Concomitant]
     Active Substance: FUSIDIC ACID
  10. GABAPENTIN [Concomitant]
     Active Substance: GABAPENTIN
  11. GLICLAZIDE [Concomitant]
     Active Substance: GLICLAZIDE
  12. METFORMIN [Concomitant]
     Active Substance: METFORMIN HYDROCHLORIDE
  13. RABEPRAZOLE [Concomitant]
     Active Substance: RABEPRAZOLE
  14. ROSUVASTATIN [Concomitant]
     Active Substance: ROSUVASTATIN
  15. TOBRAMYCIN [Concomitant]
     Active Substance: TOBRAMYCIN
  16. THYROXINE [Concomitant]
     Active Substance: LEVOTHYROXINE

REACTIONS (1)
  - Neoplasm malignant [Unknown]

NARRATIVE: CASE EVENT DATE: 20250101
